FAERS Safety Report 17622789 (Version 1)
Quarter: 2020Q2

REPORT INFORMATION
  Report Type: Spontaneous
  Country: US (occurrence: US)
  Receive Date: 20200403
  Receipt Date: 20200403
  Transmission Date: 20200713
  Serious: Yes (Life-Threatening, Hospitalization)
  Sender: FDA-Public Use
  Company Number: None

PATIENT
  Age: 10 Year
  Sex: Female
  Weight: 55 kg

DRUGS (1)
  1. RITUXIMAB. [Suspect]
     Active Substance: RITUXIMAB
     Indication: BURKITT^S LEUKAEMIA
     Dosage: ?          OTHER FREQUENCY:ONCE;?
     Route: 042
     Dates: start: 20200318, end: 20200318

REACTIONS (8)
  - Pneumonia [None]
  - Lung opacity [None]
  - Ventricular fibrillation [None]
  - Electrocardiogram QT prolonged [None]
  - Blood magnesium decreased [None]
  - Acute respiratory failure [None]
  - Pneumopericardium [None]
  - Traumatic lung injury [None]

NARRATIVE: CASE EVENT DATE: 20200320
